FAERS Safety Report 4761468-4 (Version None)
Quarter: 2005Q3

REPORT INFORMATION
  Report Type: 
  Country: None (occurrence: None)
  Receive Date: 20050902
  Receipt Date: 20050902
  Transmission Date: 20060218
  Serious: Yes (Hospitalization, Other)
  Sender: FDA-Public Use
  Company Number: None

PATIENT
  Age: 55 Year
  Sex: Male
  Weight: 47.1741 kg

DRUGS (3)
  1. CETUXIMAB:400 MG/M2 W/1; 250 MG/M2; BRISTOL MYERS SQU [Suspect]
     Indication: HEPATIC NEOPLASM MALIGNANT
     Dosage: 360 MG/M2-WEEKLY /IV/1 HR
     Route: 042
     Dates: start: 20050830
  2. TYLENOL [Concomitant]
  3. PERCOCET [Concomitant]

REACTIONS (1)
  - PYREXIA [None]
